FAERS Safety Report 4730921-1 (Version None)
Quarter: 2005Q3

REPORT INFORMATION
  Report Type: 
  Country: None (occurrence: None)
  Receive Date: 20050719
  Receipt Date: 20050426
  Transmission Date: 20060218
  Serious: Yes (Hospitalization)
  Sender: FDA-Public Use
  Company Number: 2005BI008685

PATIENT

DRUGS (7)
  1. AVONEX [Suspect]
     Indication: MULTIPLE SCLEROSIS
     Dosage: 30 UG; QW; IM
     Route: 030
     Dates: start: 20020704
  2. ESCITALOPRAM [Concomitant]
  3. BACLOFEN [Concomitant]
  4. IBUPROFEN [Concomitant]
  5. CELECOXIB [Concomitant]
  6. PROTONIX [Concomitant]
  7. REGLAN [Concomitant]

REACTIONS (2)
  - CHEST PAIN [None]
  - PAIN IN JAW [None]
